FAERS Safety Report 23929944 (Version 2)
Quarter: 2024Q2

REPORT INFORMATION
  Report Type: Spontaneous
  Country: FR (occurrence: FR)
  Receive Date: 20240601
  Receipt Date: 20240610
  Transmission Date: 20240716
  Serious: Yes (Disabling)
  Sender: FDA-Public Use
  Company Number: FR-MLMSERVICE-20240516-PI065271-00246-2

PATIENT

DRUGS (2)
  1. OLANZAPINE [Suspect]
     Active Substance: OLANZAPINE
     Indication: Schizophrenia
     Route: 048
     Dates: start: 202210, end: 2022
  2. OLANZAPINE [Suspect]
     Active Substance: OLANZAPINE
     Dosage: HE TRIED REDUCING THE OLANZAPINE DOSAGE TO 5 MG/DAY ON HIS OWN, BUT IT HAD NO EFFECT ON CU SYMPTOMS.
     Route: 048
     Dates: start: 2022, end: 202211

REACTIONS (2)
  - Type I hypersensitivity [Recovered/Resolved]
  - Urticaria cholinergic [Recovered/Resolved]

NARRATIVE: CASE EVENT DATE: 20221001
